FAERS Safety Report 9765100 (Version 1)
Quarter: 2013Q4

REPORT INFORMATION
  Report Type: Spontaneous
  Country: US (occurrence: None)
  Receive Date: 20131216
  Receipt Date: 20131216
  Transmission Date: 20140711
  Serious: Yes (Other)
  Sender: FDA-Public Use
  Company Number: None

PATIENT
  Age: 42 Year
  Sex: Female
  Weight: 71.22 kg

DRUGS (1)
  1. TECFIDERA [Suspect]
     Indication: MULTIPLE SCLEROSIS
     Route: 048
     Dates: start: 20131119, end: 20131209

REACTIONS (5)
  - Malaise [None]
  - Headache [None]
  - Sensation of heaviness [None]
  - Urinary tract infection [None]
  - Feeling abnormal [None]
